FAERS Safety Report 5484630-4 (Version None)
Quarter: 2007Q4

REPORT INFORMATION
  Report Type: 
  Country: None (occurrence: None)
  Receive Date: 20071010
  Receipt Date: 20070926
  Transmission Date: 20080405
  Serious: Yes (Other)
  Sender: FDA-Public Use
  Company Number: FABR-11385

PATIENT
  Age: 63 Year
  Sex: Male
  Weight: 70 kg

DRUGS (8)
  1. FABRAZYME [Suspect]
     Indication: FABRY'S DISEASE
     Dosage: 70 MG Q2WKS IV
     Route: 042
     Dates: start: 20040922
  2. DICLOFENAC SODIUM [Concomitant]
  3. BETAMETHASONE [Concomitant]
  4. D-CHLORPHENIRAMINE MALEATE [Concomitant]
  5. ENALAPRIL MALEATE [Concomitant]
  6. PRECIPITATED CALCIUM CARBONATE [Concomitant]
  7. MECOBALAMIN [Concomitant]
  8. ALFACALCIDOL [Concomitant]

REACTIONS (1)
  - ATRIAL FIBRILLATION [None]
